FAERS Safety Report 15787554 (Version 11)
Quarter: 2021Q4

REPORT INFORMATION
  Report Type: Spontaneous
  Country: US (occurrence: US)
  Receive Date: 20190103
  Receipt Date: 20211105
  Transmission Date: 20220303
  Serious: Yes (Hospitalization)
  Sender: FDA-Public Use
  Company Number: US-PFIZER INC-2019002459

PATIENT
  Age: 61 Year
  Sex: Female
  Weight: 75 kg

DRUGS (4)
  1. DETROL LA [Suspect]
     Active Substance: TOLTERODINE TARTRATE
     Indication: Hypertonic bladder
     Dosage: 4 MG, 1X/DAY [1 CAPSULE ONCE A DAY]
     Route: 048
     Dates: start: 2001, end: 201901
  2. DETROL LA [Suspect]
     Active Substance: TOLTERODINE TARTRATE
     Indication: Incontinence
  3. DETROL LA [Suspect]
     Active Substance: TOLTERODINE TARTRATE
     Indication: Urinary incontinence
  4. DETROL LA [Suspect]
     Active Substance: TOLTERODINE TARTRATE
     Indication: Stress

REACTIONS (7)
  - Arthropathy [Unknown]
  - Somnolence [Unknown]
  - Emphysema [Unknown]
  - Muscular weakness [Unknown]
  - Loss of personal independence in daily activities [Unknown]
  - Asthenia [Unknown]
  - Drug ineffective [Unknown]
